FAERS Safety Report 7901110-4 (Version None)
Quarter: 2011Q4

REPORT INFORMATION
  Report Type: 
  Country: None (occurrence: None)
  Receive Date: 20111104
  Receipt Date: 20111026
  Transmission Date: 20120403
  Serious: Yes (Other)
  Sender: FDA-Public Use
  Company Number: 1000024312

PATIENT
  Age: 71 Year
  Sex: Female
  Weight: 72.7 kg

DRUGS (13)
  1. TRAZODONE HCL [Suspect]
     Indication: DEPRESSION
     Dosage: 300 MG (300 MG, 1 IN 1 D);
  2. PRISTIQ [Suspect]
     Indication: DEPRESSION
     Dosage: (50 MG, EVERY OTHER DYA), ORAL
     Route: 048
     Dates: start: 20110901
  3. ATIVAN [Concomitant]
  4. DEPLIN (CALCIUM LEVOMEFOLATE) [Concomitant]
  5. TOPROL-XL [Concomitant]
  6. CYMBALTA [Concomitant]
  7. OMEGA 3 FATTY ACIDS [Concomitant]
  8. SPECTRAVITE (MULTIVITAMINS) [Concomitant]
  9. BENICAR [Concomitant]
  10. LEXAPRO [Suspect]
     Indication: DEPRESSION
     Dosage: 10 MG (10 MG, 1 IN 1 D), ORAL
     Route: 048
  11. VIATMIN D3 (COLECALCIFEROL) [Concomitant]
  12. ZYPREXA [Suspect]
     Indication: DEPRESSION
     Dosage: 10 MG (10 MG, 1 IN 1 D), ORAL
     Route: 048
  13. LEVOTHROID [Concomitant]

REACTIONS (1)
  - NO ADVERSE EVENT [None]
